FAERS Safety Report 4283975-3 (Version None)
Quarter: 2004Q1

REPORT INFORMATION
  Report Type: 
  Country: None (occurrence: None)
  Receive Date: 20040202
  Receipt Date: 20040202
  Transmission Date: 20041129
  Serious: Yes (Other)
  Sender: FDA-Public Use
  Company Number: None

PATIENT
  Age: 38 Year
  Sex: Male

DRUGS (3)
  1. FAMOTIDINE 20 MG/2 ML BEDFORD LABORATORIES [Suspect]
     Indication: PROPHYLAXIS
     Dosage: 20 MG Q 12 HRS IV
     Route: 042
  2. FAMOTIDINE 20 MG/2 ML BEDFORD LABORATORIES [Suspect]
     Indication: STRESS ULCER
     Dosage: 20 MG Q 12 HRS IV
     Route: 042
  3. NOREPINEPHRINE 4 MG/4 ML  BEDFORD LABORATORIES [Suspect]

REACTIONS (1)
  - MEDICATION ERROR [None]
